FAERS Safety Report 7844872-7 (Version None)
Quarter: 2011Q4

REPORT INFORMATION
  Report Type: 
  Country: None (occurrence: None)
  Receive Date: 20111025
  Receipt Date: 20111021
  Transmission Date: 20120403
  Serious: Yes (Death)
  Sender: FDA-Public Use
  Company Number: DE-GLAXOSMITHKLINE-D0073048A

PATIENT
  Age: 38 Year
  Sex: Male

DRUGS (5)
  1. LAMOTRIGINE [Concomitant]
     Indication: EPILEPSY
     Dosage: 200MG PER DAY
     Route: 065
  2. ESLICARBAZEPINE ACETATE [Concomitant]
     Indication: EPILEPSY
     Dosage: 1200MG PER DAY
     Route: 065
  3. VAGAL NERVE STIMULATOR [Concomitant]
     Indication: EPILEPSY
     Route: 065
  4. VALPROIC ACID [Concomitant]
     Indication: EPILEPSY
     Dosage: 1900MG PER DAY
     Route: 065
  5. TROBALT [Suspect]
     Indication: PARTIAL SEIZURES
     Route: 048
     Dates: start: 20110101

REACTIONS (1)
  - SUDDEN UNEXPLAINED DEATH IN EPILEPSY [None]
